FAERS Safety Report 10659472 (Version 1)
Quarter: 2014Q4

REPORT INFORMATION
  Report Type: Spontaneous
  Country: US (occurrence: US)
  Receive Date: 20141217
  Receipt Date: 20141217
  Transmission Date: 20150529
  Serious: Yes (Other)
  Sender: FDA-Public Use
  Company Number: US-ASTRAZENECA-2014SE95048

PATIENT
  Age: 68 Year
  Sex: Female
  Weight: 95.3 kg

DRUGS (4)
  1. STEROIDS [Suspect]
     Active Substance: UNSPECIFIED INGREDIENT
     Route: 065
  2. ADVAIR HFA [Concomitant]
     Active Substance: FLUTICASONE PROPIONATE\SALMETEROL XINAFOATE
  3. ADVAIR HFA [Concomitant]
     Active Substance: FLUTICASONE PROPIONATE\SALMETEROL XINAFOATE
  4. SYMBICORT [Suspect]
     Active Substance: BUDESONIDE\FORMOTEROL FUMARATE DIHYDRATE
     Indication: CHRONIC OBSTRUCTIVE PULMONARY DISEASE
     Dosage: 160/4.5 MCG 1 PUFF BID
     Route: 055
     Dates: start: 20140102, end: 201401

REACTIONS (6)
  - Hearing impaired [Unknown]
  - Off label use [Recovered/Resolved]
  - Malaise [Unknown]
  - Neoplasm malignant [Unknown]
  - Cardiac disorder [Unknown]
  - Asthma [Unknown]

NARRATIVE: CASE EVENT DATE: 20140102
